FAERS Safety Report 5640711-3 (Version None)
Quarter: 2008Q1

REPORT INFORMATION
  Report Type: 
  Country: None (occurrence: None)
  Receive Date: 20080227
  Receipt Date: 20080215
  Transmission Date: 20080703
  Serious: Yes (Hospitalization)
  Sender: FDA-Public Use
  Company Number: US-WYE-H02681008

PATIENT
  Sex: Male

DRUGS (1)
  1. SIROLIMUS [Suspect]
     Indication: PROPHYLAXIS AGAINST TRANSPLANT REJECTION
     Dosage: 6 MG, FREQUENCY NOT SPECIFIED
     Route: 048
     Dates: start: 20050311, end: 20050326

REACTIONS (2)
  - CONDITION AGGRAVATED [None]
  - SKIN ULCER [None]
